FAERS Safety Report 7283328-X (Version None)
Quarter: 2011Q1

REPORT INFORMATION
  Report Type: 
  Country: None (occurrence: None)
  Receive Date: 20110209
  Receipt Date: 20110127
  Transmission Date: 20110831
  Serious: Yes (Death, Hospitalization)
  Sender: FDA-Public Use
  Company Number: IT-BAYER-2011-002125

PATIENT
  Sex: Male

DRUGS (3)
  1. ASPIRIN [Suspect]
     Indication: ACUTE MYOCARDIAL INFARCTION
     Dosage: 100 MG, QD
     Route: 048
     Dates: start: 20091113, end: 20101206
  2. IRBESARTAN [Concomitant]
     Dosage: UNK
     Route: 048
     Dates: start: 20080101
  3. COUMADIN [Suspect]
     Dosage: 10 MG, QD
     Route: 048
     Dates: start: 20091113, end: 20101206

REACTIONS (3)
  - LOSS OF CONSCIOUSNESS [None]
  - CEREBRAL HAEMORRHAGE [None]
  - CARDIAC ARREST [None]
